FAERS Safety Report 4328878-0 (Version None)
Quarter: 2004Q2

REPORT INFORMATION
  Report Type: 
  Country: None (occurrence: None)
  Receive Date: 20040401
  Receipt Date: 20030602
  Transmission Date: 20050107
  Serious: Yes (Hospitalization, Other)
  Sender: FDA-Public Use
  Company Number: 200315123US

PATIENT
  Sex: Female
  Weight: 97.3 kg

DRUGS (24)
  1. ARAVA [Suspect]
     Indication: RHEUMATOID ARTHRITIS
     Dosage: DOSE: UNK
     Dates: start: 20010926, end: 20011201
  2. METHOTREXATE [Concomitant]
     Dates: end: 20011201
  3. PREVACID [Concomitant]
     Dates: start: 20010903
  4. K-DUR 10 [Concomitant]
     Dates: start: 20020406
  5. FLONASE [Concomitant]
     Dates: start: 20020208
  6. LEUCOVORIN CALCIUM [Concomitant]
     Dates: start: 20010812
  7. SYNTHROID [Concomitant]
  8. DARVOCET-N 100 [Concomitant]
  9. VIOXX [Concomitant]
     Route: 048
     Dates: start: 20010804, end: 20020101
  10. PREDNISONE [Concomitant]
  11. AMBIEN [Concomitant]
  12. COVERA-HS [Concomitant]
  13. ALBUTEROL [Concomitant]
     Dosage: DOSE: UNK
     Route: 055
  14. DOXYCYCLINE [Concomitant]
  15. ATIVAN [Concomitant]
  16. ADIPEX-P [Concomitant]
     Dates: start: 20010425
  17. ASPIRIN [Concomitant]
  18. TYLENOL (CAPLET) [Concomitant]
  19. AFRIN [Concomitant]
  20. IMODIUM [Concomitant]
  21. NYQUIL [Concomitant]
  22. PEPTO-BISMOL [Concomitant]
  23. BENADRYL [Concomitant]
  24. VITAMIN E [Concomitant]

REACTIONS (19)
  - ANOREXIA [None]
  - ANTINUCLEAR ANTIBODY POSITIVE [None]
  - ASTHENIA [None]
  - BURNING SENSATION [None]
  - CYST [None]
  - DEMYELINATION [None]
  - GASTRIC DISORDER [None]
  - HAEMOCHROMATOSIS [None]
  - HEPATIC STEATOSIS [None]
  - HEPATITIS [None]
  - HEPATOCELLULAR DAMAGE [None]
  - MOBILITY DECREASED [None]
  - NAUSEA [None]
  - NEUROPATHY PERIPHERAL [None]
  - PARAESTHESIA [None]
  - SINUS DISORDER [None]
  - SINUS POLYP [None]
  - VOMITING [None]
  - WEIGHT DECREASED [None]
